FAERS Safety Report 18576083 (Version 4)
Quarter: 2021Q1

REPORT INFORMATION
  Report Type: Spontaneous
  Country: JP (occurrence: JP)
  Receive Date: 20201203
  Receipt Date: 20210223
  Transmission Date: 20210419
  Serious: Yes (Other)
  Sender: FDA-Public Use
  Company Number: JP-PFIZER INC-2020473999

PATIENT
  Age: 52 Year
  Sex: Female
  Weight: 48.7 kg

DRUGS (11)
  1. IBRANCE [Suspect]
     Active Substance: PALBOCICLIB
     Dosage: 100 MG, 1X/DAY (IN THE MORNING)
     Route: 048
     Dates: start: 20200917, end: 20200930
  2. IBRANCE [Suspect]
     Active Substance: PALBOCICLIB
     Dosage: 100 MG, 1X/DAY (IN THE EVENING)
     Route: 048
     Dates: start: 20201015, end: 20201028
  3. IBRANCE [Suspect]
     Active Substance: PALBOCICLIB
     Dosage: 100 MG, 1X/DAY (IN THE MORNING)
     Route: 048
     Dates: start: 20201112, end: 20201125
  4. FULVESTRANT. [Concomitant]
     Active Substance: FULVESTRANT
     Indication: BREAST CANCER FEMALE
     Dosage: 500 MG, DAILY
     Route: 030
     Dates: start: 20200722
  5. IBRANCE [Suspect]
     Active Substance: PALBOCICLIB
     Indication: BREAST CANCER FEMALE
     Dosage: 100 MG, 1X/DAY
     Route: 048
     Dates: start: 20200722, end: 20200811
  6. IBRANCE [Suspect]
     Active Substance: PALBOCICLIB
     Dosage: 75 MG, 1X/DAY (IN THE EVENING)
     Route: 048
     Dates: start: 20201001, end: 20201007
  7. IBRANCE [Suspect]
     Active Substance: PALBOCICLIB
     Dosage: 75 MG, 1X/DAY (IN THE EVENING)
     Route: 048
     Dates: start: 20201126, end: 20201130
  8. THYRADIN [Concomitant]
     Active Substance: LEVOTHYROXINE
     Dosage: 25 UG, DAILY
     Route: 048
     Dates: start: 20151125
  9. IBRANCE [Suspect]
     Active Substance: PALBOCICLIB
     Dosage: 75 MG, 1X/DAY (IN THE EVENING)
     Route: 048
     Dates: start: 20200903, end: 20200909
  10. IBRANCE [Suspect]
     Active Substance: PALBOCICLIB
     Dosage: 75 MG, 1X/DAY (IN THE EVENING)
     Route: 048
     Dates: start: 20201029, end: 20201104
  11. IBRANCE [Suspect]
     Active Substance: PALBOCICLIB
     Dosage: 100 MG, 1X/DAY (IN THE MORNING)
     Route: 048
     Dates: start: 20200820, end: 20200902

REACTIONS (2)
  - Feeding disorder [Recovered/Resolved]
  - Stomatitis [Recovered/Resolved]

NARRATIVE: CASE EVENT DATE: 202009
